FAERS Safety Report 8571263-6 (Version None)
Quarter: 2012Q3

REPORT INFORMATION
  Report Type: 
  Country: None (occurrence: None)
  Receive Date: 20120730
  Receipt Date: 20120730
  Transmission Date: 20120928
  Serious: Yes (Hospitalization)
  Sender: FDA-Public Use
  Company Number: None

PATIENT
  Age: 60 Year
  Sex: Female
  Weight: 111.9 kg

DRUGS (1)
  1. ACETAMINOPHEN AND HYDROCODONE BITARTRATE [Suspect]
     Indication: PAIN
     Dosage: 5/500 MG, OTHER, PO
     Route: 048
     Dates: start: 20120618, end: 20120718

REACTIONS (7)
  - HYPOTENSION [None]
  - CONSTIPATION [None]
  - LACTIC ACIDOSIS [None]
  - HYPERKALAEMIA [None]
  - DIZZINESS [None]
  - ILEUS [None]
  - RENAL FAILURE ACUTE [None]
